FAERS Safety Report 7224526-0 (Version None)
Quarter: 2011Q1

REPORT INFORMATION
  Report Type: 
  Country: None (occurrence: None)
  Receive Date: 20110113
  Receipt Date: 20110105
  Transmission Date: 20110831
  Serious: No
  Sender: FDA-Public Use
  Company Number: US-PFIZER INC-2010176137

PATIENT
  Sex: Male
  Weight: 52.608 kg

DRUGS (7)
  1. REGLAN [Concomitant]
     Indication: DYSPEPSIA
     Dosage: 10 MG, 4X/DAY
     Route: 048
  2. XANAX [Concomitant]
     Indication: DEPRESSION
  3. VIAGRA [Suspect]
     Indication: ERECTILE DYSFUNCTION
     Dosage: UNK
     Route: 048
     Dates: start: 20101201
  4. EFFEXOR [Concomitant]
     Indication: ANXIETY
     Dosage: 75 MG, 1X/DAY
     Route: 048
  5. POTASSIUM [Concomitant]
     Dosage: UNK
     Route: 048
  6. XANAX [Concomitant]
     Indication: MENTAL DISORDER
     Dosage: 1 MG, 4X/DAY
     Route: 048
     Dates: start: 19860101
  7. DIAZEPAM [Concomitant]
     Indication: ANTIDEPRESSANT THERAPY
     Dosage: 25 MG, 1X/DAY

REACTIONS (2)
  - WRONG TECHNIQUE IN DRUG USAGE PROCESS [None]
  - RETROGRADE EJACULATION [None]
